FAERS Safety Report 7091138-1 (Version None)
Quarter: 2010Q4

REPORT INFORMATION
  Report Type: 
  Country: None (occurrence: None)
  Receive Date: 20101109
  Receipt Date: 20101028
  Transmission Date: 20110411
  Serious: Yes (Other)
  Sender: FDA-Public Use
  Company Number: FI-ROCHE-728539

PATIENT
  Sex: Male
  Weight: 79 kg

DRUGS (2)
  1. ROACTEMRA [Suspect]
     Indication: RHEUMATOID ARTHRITIS
     Dosage: DOSE: 632 MG, DATE OF LAST DOSE PRIOR TO SAE: 27 AUGUST 2010, DRUG WITHHELD
     Route: 042
     Dates: start: 20100728, end: 20100827
  2. PREDNISOLONE [Concomitant]
     Indication: RHEUMATOID ARTHRITIS

REACTIONS (2)
  - SKIN ULCER [None]
  - VASCULITIS [None]
